FAERS Safety Report 5880124-2 (Version None)
Quarter: 2008Q3

REPORT INFORMATION
  Report Type: 
  Country: None (occurrence: None)
  Receive Date: 20080912
  Receipt Date: 20080902
  Transmission Date: 20090109
  Serious: Yes (Death, Other)
  Sender: FDA-Public Use
  Company Number: GB-PFIZER INC-2008073326

PATIENT
  Age: 31 Year
  Sex: Female
  Weight: 55.5 kg

DRUGS (8)
  1. PREGABALIN [Suspect]
  2. DIAZEPAM [Suspect]
  3. BUSPIRONE HCL [Suspect]
  4. AMITRIPTYLINE HCL [Suspect]
  5. HUMALOG [Suspect]
  6. INSULIN DETEMIR [Suspect]
  7. VALPROIC ACID [Concomitant]
  8. QUETIAPINE FUMARATE [Concomitant]

REACTIONS (3)
  - CARDIAC DEATH [None]
  - DIABETES MELLITUS INADEQUATE CONTROL [None]
  - GENERALISED ANXIETY DISORDER [None]
